FAERS Safety Report 14226788 (Version 1)
Quarter: 2017Q4

REPORT INFORMATION
  Report Type: Spontaneous
  Country: CA (occurrence: CA)
  Receive Date: 20171127
  Receipt Date: 20171127
  Transmission Date: 20180321
  Serious: Yes (Hospitalization)
  Sender: FDA-Public Use
  Company Number: CA-HIKMA PHARMACEUTICALS CO. LTD-2017CA016111

PATIENT

DRUGS (4)
  1. INFLECTRA [Suspect]
     Active Substance: INFLIXIMAB-DYYB
     Indication: RHEUMATOID ARTHRITIS
     Dosage: 500 MG, CYCLIC (EVERY 2,6 AND 8 WEEKS)
  2. ZOPICLONE [Concomitant]
     Active Substance: ZOPICLONE
     Dosage: 12.5 MG, UNK, AT BEDTIME
  3. INFLECTRA [Suspect]
     Active Substance: INFLIXIMAB-DYYB
     Indication: COLITIS ULCERATIVE
     Dosage: 454 MG, CYCLIC (EVERY 2,6 AND 8 WEEKS)
     Route: 042
     Dates: start: 20171030
  4. PREDNISONE. [Concomitant]
     Active Substance: PREDNISONE
     Dosage: 50 MG, UNK
     Dates: start: 20171030

REACTIONS (3)
  - Condition aggravated [Unknown]
  - Product use issue [Unknown]
  - Rectal haemorrhage [Unknown]
